FAERS Safety Report 13734937 (Version 1)
Quarter: 2017Q3

REPORT INFORMATION
  Report Type: Spontaneous
  Country: BE (occurrence: BE)
  Receive Date: 20170710
  Receipt Date: 20170710
  Transmission Date: 20171127
  Serious: Yes (Hospitalization)
  Sender: FDA-Public Use
  Company Number: BE-BEH-2017081965

PATIENT
  Sex: Female
  Weight: 70 kg

DRUGS (2)
  1. PROFENOL [Concomitant]
     Indication: MIGRAINE
     Dosage: 1-2 X/DAY IF NEEDED
     Route: 048
     Dates: start: 2013
  2. PRIVIGEN [Suspect]
     Active Substance: HUMAN IMMUNOGLOBULIN G
     Indication: IMMUNE THROMBOCYTOPENIC PURPURA
     Dosage: UNK
     Route: 042
     Dates: start: 2013, end: 2013

REACTIONS (3)
  - Nystagmus [Not Recovered/Not Resolved]
  - Migraine [Not Recovered/Not Resolved]
  - Meningism [Not Recovered/Not Resolved]

NARRATIVE: CASE EVENT DATE: 2013
